FAERS Safety Report 20221761 (Version 2)
Quarter: 2021Q4

REPORT INFORMATION
  Report Type: Spontaneous
  Country: US (occurrence: US)
  Receive Date: 20211223
  Receipt Date: 20211227
  Transmission Date: 20220304
  Serious: No
  Sender: FDA-Public Use
  Company Number: US-JNJFOC-20211227918

PATIENT
  Age: 8 Decade
  Sex: Male

DRUGS (1)
  1. MENS ROGAINE EXTRA STRENGTH [Suspect]
     Active Substance: MINOXIDIL
     Indication: Alopecia
     Dosage: DOSE:  2 PUMPS A DAY
     Route: 061

REACTIONS (3)
  - Alopecia [Unknown]
  - Incorrect dose administered [Unknown]
  - Incorrect product administration duration [Unknown]
